FAERS Safety Report 6379339-9 (Version None)
Quarter: 2009Q3

REPORT INFORMATION
  Report Type: 
  Country: None (occurrence: None)
  Receive Date: 20090923
  Receipt Date: 20090923
  Transmission Date: 20100115
  Serious: Yes (Life-Threatening, Hospitalization)
  Sender: FDA-Public Use
  Company Number: None

PATIENT
  Age: 72 Year
  Sex: Female
  Weight: 106 kg

DRUGS (16)
  1. HEPARIN [Suspect]
     Indication: THROMBOSIS
     Dosage: VAR IV C I
     Route: 042
     Dates: start: 20081103, end: 20081108
  2. WARFARIN SODIUM [Suspect]
     Indication: THROMBOSIS
     Dosage: 5 - 7.5 MG PO QD
  3. INSULIN [Concomitant]
  4. ASPIRIN [Concomitant]
  5. COLCHICINE [Concomitant]
  6. CARVEDILOL [Concomitant]
  7. IMDUR [Concomitant]
  8. LEVOTHYROXINE SODIUM [Concomitant]
  9. EGETIMIBE [Concomitant]
  10. RANITIDINE [Concomitant]
  11. DOCUSATE [Concomitant]
  12. HYDRALAZINE [Concomitant]
  13. LISINOPRIL [Concomitant]
  14. METOLAZONE [Concomitant]
  15. FUROSEMIDE [Concomitant]
  16. BUMETANIDE [Concomitant]

REACTIONS (3)
  - GASTRIC ULCER [None]
  - HAEMOGLOBIN DECREASED [None]
  - RETROPERITONEAL HAEMATOMA [None]
